FAERS Safety Report 9118382 (Version 1)
Quarter: 2013Q1

REPORT INFORMATION
  Report Type: Spontaneous
  Country: US (occurrence: None)
  Receive Date: 20130221
  Receipt Date: 20130221
  Transmission Date: 20140127
  Serious: Yes (Other)
  Sender: FDA-Public Use
  Company Number: None

PATIENT
  Age: 12 Year
  Sex: Female
  Weight: 60.3 kg

DRUGS (1)
  1. REMICADE [Suspect]
     Indication: JUVENILE IDIOPATHIC ARTHRITIS
     Dosage: 300 MG EVERY 7 WEEKS, IV
     Route: 042
     Dates: start: 20110225, end: 20130118

REACTIONS (2)
  - Paranoia [None]
  - Abnormal behaviour [None]
